FAERS Safety Report 8572515-6 (Version None)
Quarter: 2012Q3

REPORT INFORMATION
  Report Type: 
  Country: None (occurrence: None)
  Receive Date: 20120806
  Receipt Date: 20120730
  Transmission Date: 20120928
  Serious: Yes (Death, Hospitalization, Other)
  Sender: FDA-Public Use
  Company Number: CN-ROCHE-1094680

PATIENT
  Age: 78 Year
  Sex: Male

DRUGS (3)
  1. AVASTIN [Suspect]
     Indication: RECTAL CANCER METASTATIC
  2. TARCEVA [Suspect]
     Indication: RECTAL CANCER METASTATIC
     Route: 048
     Dates: start: 20120601, end: 20120609
  3. XELODA [Suspect]
     Indication: RECTAL CANCER METASTATIC
     Route: 048
     Dates: end: 20120223

REACTIONS (20)
  - BRONCHIAL CARCINOMA [None]
  - APHASIA [None]
  - DYSPNOEA [None]
  - METASTASES TO BONE [None]
  - DEPRESSED LEVEL OF CONSCIOUSNESS [None]
  - STOMATITIS [None]
  - BLOOD UREA INCREASED [None]
  - INCONTINENCE [None]
  - ASTHMA [None]
  - PRODUCTIVE COUGH [None]
  - DECREASED APPETITE [None]
  - VOMITING [None]
  - ASTHENIA [None]
  - DIARRHOEA [None]
  - EPISTAXIS [None]
  - DEATH [None]
  - OEDEMA PERIPHERAL [None]
  - NAUSEA [None]
  - RASH PRURITIC [None]
  - BLOOD CREATININE INCREASED [None]
